FAERS Safety Report 8046042-9 (Version None)
Quarter: 2012Q1

REPORT INFORMATION
  Report Type: 
  Country: None (occurrence: None)
  Receive Date: 20120113
  Receipt Date: 20120111
  Transmission Date: 20120608
  Serious: Yes (Hospitalization)
  Sender: FDA-Public Use
  Company Number: US-PFIZER INC-2012009468

PATIENT
  Sex: Male
  Weight: 69.841 kg

DRUGS (12)
  1. LISINOPRIL [Concomitant]
     Dosage: 10 MG, DAILY
     Route: 048
  2. NITROSTAT [Suspect]
     Indication: CHEST PAIN
     Dosage: 0.4 MG, AS NEEDED
     Route: 060
  3. NITROGLYCERIN [Suspect]
     Indication: CHEST PAIN
     Dosage: 5 MG, 3X/DAY
     Route: 048
  4. PLAVIX [Concomitant]
     Dosage: 75 MG, DAILY
     Route: 048
  5. LORATADINE [Concomitant]
     Dosage: 300 MG, 2X/DAY
     Route: 048
  6. ACETYLSALICYLIC ACID [Concomitant]
     Indication: CARDIAC DISORDER
     Dosage: 81 MG, DAILY
     Route: 048
  7. FISH OIL [Concomitant]
     Indication: CARDIAC DISORDER
     Dosage: 100 MG, DAILY
     Route: 048
  8. CALCIUM [Concomitant]
     Indication: BONE DISORDER
     Dosage: 1200 MG, DAILY
     Route: 048
  9. HYDROCODONE [Concomitant]
     Dosage: UNK, 3X/DAY
     Route: 048
  10. METOPROLOL [Concomitant]
     Dosage: 50 MG, DAILY
     Route: 048
  11. ZETIA [Concomitant]
     Dosage: 10 MG, DAILY
     Route: 048
  12. AMLODIPINE [Concomitant]
     Indication: BLOOD PRESSURE ABNORMAL
     Dosage: 5 MG, DAILY
     Route: 048

REACTIONS (3)
  - NASOPHARYNGITIS [None]
  - CHEST PAIN [None]
  - DRUG EFFECT DECREASED [None]
